FAERS Safety Report 24268714 (Version 1)
Quarter: 2024Q3

REPORT INFORMATION
  Report Type: Spontaneous
  Country: IE (occurrence: IE)
  Receive Date: 20240830
  Receipt Date: 20240830
  Transmission Date: 20241017
  Serious: Yes (Hospitalization)
  Sender: TAKEDA
  Company Number: None

PATIENT
  Age: 70 Year
  Sex: Male
  Weight: 87.8 kg

DRUGS (12)
  1. ENTYVIO [Suspect]
     Active Substance: VEDOLIZUMAB
     Indication: Colitis ulcerative
     Dosage: 300 MILLIGRAM
     Route: 065
     Dates: start: 20240710, end: 20240710
  2. ENTYVIO [Suspect]
     Active Substance: VEDOLIZUMAB
     Dosage: 300 MILLIGRAM
     Route: 065
     Dates: start: 20240725, end: 20240725
  3. AZOPT [Concomitant]
     Active Substance: BRINZOLAMIDE
     Dosage: UNK
  4. LEVOTHYROXINE [Concomitant]
     Active Substance: LEVOTHYROXINE\LEVOTHYROXINE SODIUM
     Dosage: 50 MICROGRAM
  5. ATORVASTATIN [Concomitant]
     Active Substance: ATORVASTATIN
     Dosage: 20 MILLIGRAM
  6. ASACOL [Concomitant]
     Active Substance: MESALAMINE
     Dosage: 2400 MILLIGRAM
  7. SITAGLIPTIN [Concomitant]
     Active Substance: SITAGLIPTIN
     Dosage: 100 MILLIGRAM
  8. ENTOCORT [Concomitant]
     Active Substance: BUDESONIDE
     Dosage: 9 MILLIGRAM
  9. OMEPRAZOLE [Concomitant]
     Active Substance: OMEPRAZOLE
     Dosage: 20 MILLIGRAM
  10. METFORMIN [Concomitant]
     Active Substance: METFORMIN HYDROCHLORIDE
     Dosage: 1000 MILLIGRAM
  11. TIMOLOL MALEATE\TRAVOPROST [Concomitant]
     Active Substance: TIMOLOL MALEATE\TRAVOPROST
     Dosage: UNK
  12. GLICLAZIDE [Concomitant]
     Active Substance: GLICLAZIDE
     Dosage: 30 MILLIGRAM

REACTIONS (5)
  - Feeling cold [Recovered/Resolved]
  - Heart rate increased [Recovered/Resolved]
  - Chills [Recovered/Resolved]
  - Hypoxia [Recovered/Resolved]
  - Tachypnoea [Recovered/Resolved]

NARRATIVE: CASE EVENT DATE: 20240725
